FAERS Safety Report 5843831-3 (Version None)
Quarter: 2008Q3

REPORT INFORMATION
  Report Type: 
  Country: None (occurrence: None)
  Receive Date: 20080813
  Receipt Date: 20080805
  Transmission Date: 20090109
  Serious: Yes (Other)
  Sender: FDA-Public Use
  Company Number: PHEH2007US06797

PATIENT
  Sex: Male

DRUGS (5)
  1. AREDIA [Suspect]
  2. ZOMETA [Suspect]
  3. CLINDAMYCIN HCL [Concomitant]
     Dosage: UNK, UNK
  4. TAXOTERE [Concomitant]
     Dosage: UNK, UNK
  5. PROSCAR [Concomitant]
     Dosage: UNK, UNK

REACTIONS (6)
  - ANXIETY [None]
  - ENDODONTIC PROCEDURE [None]
  - GENERAL PHYSICAL HEALTH DETERIORATION [None]
  - OSTEONECROSIS [None]
  - PAIN [None]
  - TOOTHACHE [None]
